FAERS Safety Report 9222237 (Version 1)
Quarter: 2013Q2

REPORT INFORMATION
  Report Type: Spontaneous
  Country: US (occurrence: None)
  Receive Date: 20130408
  Receipt Date: 20130408
  Transmission Date: 20140414
  Serious: Yes (Other)
  Sender: FDA-Public Use
  Company Number: COL_13396_2013

PATIENT
  Age: 54 Year
  Sex: Female

DRUGS (1)
  1. COLGATE OPTIC WHITE SPARKLING [Suspect]
     Indication: PRODUCT USED FOR UNKNOWN INDICATION
     Route: 048
     Dates: start: 20130317, end: 20130317

REACTIONS (6)
  - Lip swelling [None]
  - Swollen tongue [None]
  - Dyspnoea [None]
  - Speech disorder [None]
  - Malaise [None]
  - Dysphagia [None]
